FAERS Safety Report 10024542 (Version 1)
Quarter: 2014Q1

REPORT INFORMATION
  Report Type: Spontaneous
  Country: US (occurrence: None)
  Receive Date: 20140319
  Receipt Date: 20140319
  Transmission Date: 20141002
  Serious: Yes (Other)
  Sender: FDA-Public Use
  Company Number: None

PATIENT
  Age: 45 Year
  Sex: Male
  Weight: 86.18 kg

DRUGS (3)
  1. NICOTINE [Suspect]
     Indication: SMOKING CESSATION THERAPY
     Route: 062
     Dates: start: 20131205
  2. ALBUTEROL [Concomitant]
  3. ZYRTEC [Concomitant]

REACTIONS (4)
  - Application site erythema [None]
  - Application site pain [None]
  - Application site vesicles [None]
  - Product substitution issue [None]
